FAERS Safety Report 22625450 (Version 1)
Quarter: 2023Q2

REPORT INFORMATION
  Report Type: Other
  Country: JP (occurrence: None)
  Receive Date: 20230621
  Receipt Date: 20230621
  Transmission Date: 20230721
  Serious: Yes (Other)
  Sender: FDA-Public Use
  Company Number: JP-ROCHE-3370564

PATIENT

DRUGS (2)
  1. ATEZOLIZUMAB [Suspect]
     Active Substance: ATEZOLIZUMAB
     Indication: Hepatocellular carcinoma
     Route: 042
  2. BEVACIZUMAB [Suspect]
     Active Substance: BEVACIZUMAB
     Indication: Hepatocellular carcinoma
     Route: 042

REACTIONS (16)
  - Erythema multiforme [Unknown]
  - Leukoencephalopathy [Unknown]
  - Gastric varices haemorrhage [Unknown]
  - Fatigue [Unknown]
  - Decreased appetite [Unknown]
  - Proteinuria [Unknown]
  - Pyrexia [Unknown]
  - Aspartate aminotransferase increased [Unknown]
  - Neutrophil count decreased [Unknown]
  - Interstitial lung disease [Unknown]
  - Gastric ulcer [Unknown]
  - Type 1 diabetes mellitus [Unknown]
  - Diarrhoea [Unknown]
  - Cerebral ischaemia [Unknown]
  - Hypoparathyroidism [Unknown]
  - Platelet count decreased [Unknown]
